FAERS Safety Report 12325569 (Version 1)
Quarter: 2016Q2

REPORT INFORMATION
  Report Type: Report from Study
  Country: AR (occurrence: AR)
  Receive Date: 20160503
  Receipt Date: 20160503
  Transmission Date: 20160815
  Serious: Yes (Death)
  Sender: FDA-Public Use
  Company Number: PHHY2016AR059435

PATIENT
  Sex: Female

DRUGS (1)
  1. DIOVAN [Suspect]
     Active Substance: VALSARTAN
     Indication: PRODUCT USED FOR UNKNOWN INDICATION
     Dosage: 1 DF, QD (80 UNITS NOT PROVIDED)
     Route: 065

REACTIONS (3)
  - Blood pressure abnormal [Unknown]
  - Renal impairment [Fatal]
  - Diabetes mellitus [Unknown]
